FAERS Safety Report 13255632 (Version 1)
Quarter: 2017Q1

REPORT INFORMATION
  Report Type: Spontaneous
  Country: US (occurrence: US)
  Receive Date: 20170218
  Receipt Date: 20170218
  Transmission Date: 20170428
  Serious: Yes (Other)
  Sender: FDA-Public Use
  Company Number: None

PATIENT
  Age: 62 Year
  Sex: Female
  Weight: 67.05 kg

DRUGS (15)
  1. WELLBUTRIN [Concomitant]
     Active Substance: BUPROPION HYDROCHLORIDE
  2. CALCIUM [Concomitant]
     Active Substance: CALCIUM
  3. PROBIOTIC [Concomitant]
     Active Substance: PROBIOTICS NOS
  4. VITAMIN D [Concomitant]
     Active Substance: CHOLECALCIFEROL
  5. BABY ASPIRIN [Concomitant]
     Active Substance: ASPIRIN
  6. CRANBERRY EXTRACT [Concomitant]
     Active Substance: CRANBERRY JUICE
  7. BRAN [Concomitant]
     Active Substance: WHEAT BRAN
  8. FIBER [Concomitant]
     Active Substance: PSYLLIUM HUSK
  9. EFFEXOR [Concomitant]
     Active Substance: VENLAFAXINE HYDROCHLORIDE
  10. PSYLLIUM HUSKS [Concomitant]
  11. FISH OIL [Concomitant]
     Active Substance: FISH OIL
  12. TEA [Concomitant]
     Active Substance: TEA LEAF
  13. XIIDRA [Suspect]
     Active Substance: LIFITEGRAST
     Indication: DRY EYE
     Dosage: ?          QUANTITY:60 SINGLE USE VIALS;?
     Route: 047
     Dates: start: 20170120, end: 20170218
  14. ARMOUR THYROID [Concomitant]
     Active Substance: THYROID, PORCINE
  15. MAGNESIUM [Concomitant]
     Active Substance: MAGNESIUM

REACTIONS (6)
  - Instillation site pruritus [None]
  - Erythema [None]
  - Adverse drug reaction [None]
  - Eyelid disorder [None]
  - Instillation site pain [None]
  - Eyelid oedema [None]

NARRATIVE: CASE EVENT DATE: 20170218
